FAERS Safety Report 21390340 (Version 1)
Quarter: 2022Q3

REPORT INFORMATION
  Report Type: Spontaneous
  Country: US (occurrence: None)
  Receive Date: 20220927
  Receipt Date: 20220927
  Transmission Date: 20221027
  Serious: Yes (Other)
  Sender: FDA-Public Use
  Company Number: None

PATIENT
  Age: 17 Year
  Sex: Male
  Weight: 21.32 kg

DRUGS (4)
  1. LACOSAMIDE [Suspect]
     Active Substance: LACOSAMIDE
  2. EPIDIOLEX [Concomitant]
     Active Substance: CANNABIDIOL
  3. LAMOTRIGINE [Concomitant]
     Active Substance: LAMOTRIGINE
  4. RUFINAMIDE [Concomitant]
     Active Substance: RUFINAMIDE

REACTIONS (2)
  - Seizure [None]
  - Product substitution issue [None]
